FAERS Safety Report 6423903-5 (Version None)
Quarter: 2009Q4

REPORT INFORMATION
  Report Type: 
  Country: None (occurrence: None)
  Receive Date: 20091028
  Receipt Date: 20091016
  Transmission Date: 20100525
  Serious: Yes (Disabling)
  Sender: FDA-Public Use
  Company Number: OSCN-NO-0910S-0471

PATIENT
  Age: 67 Year
  Sex: Female

DRUGS (1)
  1. OMNISCAN [Suspect]
     Indication: RENAL DISORDER
     Dosage: SINGLE DOSE, I.V.
     Route: 042
     Dates: start: 20040101, end: 20040101

REACTIONS (1)
  - POLYNEUROPATHY [None]
